FAERS Safety Report 6503595-7 (Version None)
Quarter: 2009Q4

REPORT INFORMATION
  Report Type: 
  Country: None (occurrence: None)
  Receive Date: 20091217
  Receipt Date: 20091207
  Transmission Date: 20100525
  Serious: Yes (Death, Life-Threatening, Hospitalization)
  Sender: FDA-Public Use
  Company Number: GB-PFIZER INC-2009289683

PATIENT
  Age: 77 Year
  Sex: Male
  Weight: 77 kg

DRUGS (6)
  1. SUTENT [Suspect]
     Indication: METASTATIC RENAL CELL CARCINOMA
     Dosage: 50 MG, 1X/DAY, 4/6 WEEK CYCLES
     Route: 048
     Dates: start: 20090421, end: 20091001
  2. TAMSULOSIN [Concomitant]
     Dosage: 400 MG, 1X/DAY
     Route: 048
     Dates: end: 20091001
  3. ATORVASTATIN [Concomitant]
     Dosage: 10 UNK, 1X/DAY
     Route: 048
     Dates: end: 20091001
  4. GLICLAZIDE [Concomitant]
     Dosage: 80 UNK, 1X/DAY
     Route: 048
     Dates: end: 20091001
  5. DIGOXIN [Concomitant]
     Dosage: 125 UNK, 1X/DAY
     Dates: end: 20091001
  6. BISOPROLOL [Concomitant]
     Dosage: 5 UNK, 1X/DAY
     Dates: end: 20091001

REACTIONS (6)
  - ALANINE AMINOTRANSFERASE INCREASED [None]
  - BLOOD BILIRUBIN ABNORMAL [None]
  - HAEMOPTYSIS [None]
  - HEPATIC NECROSIS [None]
  - JAUNDICE [None]
  - PLATELET COUNT DECREASED [None]
